FAERS Safety Report 8115501-2 (Version None)
Quarter: 2012Q1

REPORT INFORMATION
  Report Type: 
  Country: None (occurrence: None)
  Receive Date: 20120206
  Receipt Date: 20120202
  Transmission Date: 20120608
  Serious: No
  Sender: FDA-Public Use
  Company Number: US-PFIZER INC-2012029623

PATIENT
  Sex: Female

DRUGS (2)
  1. LIPITOR [Suspect]
     Dosage: UNK
     Route: 048
     Dates: start: 20110701
  2. ANASTROZOLE [Concomitant]
     Indication: BREAST CANCER FEMALE
     Dosage: UNK
     Route: 048

REACTIONS (1)
  - ARTHRALGIA [None]
